FAERS Safety Report 7939556-0 (Version None)
Quarter: 2011Q4

REPORT INFORMATION
  Report Type: 
  Country: None (occurrence: None)
  Receive Date: 20111125
  Receipt Date: 20110908
  Transmission Date: 20120403
  Serious: No
  Sender: FDA-Public Use
  Company Number: US-BAYER-2011-089413

PATIENT
  Age: 18 Month
  Sex: Male
  Weight: 12.245 kg

DRUGS (1)
  1. ALEVE (CAPLET) [Suspect]
     Dosage: 1 DF, ONCE
     Dates: start: 20110908, end: 20110908

REACTIONS (1)
  - NO ADVERSE EVENT [None]
